FAERS Safety Report 6638599-7 (Version None)
Quarter: 2010Q1

REPORT INFORMATION
  Report Type: 
  Country: None (occurrence: None)
  Receive Date: 20100316
  Receipt Date: 20100316
  Transmission Date: 20100710
  Serious: Yes (Other)
  Sender: FDA-Public Use
  Company Number: None

PATIENT
  Age: 78 Year
  Sex: Male
  Weight: 72.5755 kg

DRUGS (2)
  1. CEFEPIME [Suspect]
     Indication: STAPHYLOCOCCAL INFECTION
     Dosage: 1GR/ EVERY 12 HOURS IV
     Route: 042
     Dates: start: 20100221, end: 20100314
  2. VANCOMYCIN [Suspect]
     Indication: STAPHYLOCOCCAL INFECTION
     Dosage: 1.25GM EVERY 48 HOURS IV
     Route: 042
     Dates: start: 20100218, end: 20100314

REACTIONS (12)
  - CONFUSIONAL STATE [None]
  - DIPLOPIA [None]
  - DIZZINESS [None]
  - HYPERSOMNIA [None]
  - HYPOACUSIS [None]
  - MUSCLE TWITCHING [None]
  - MUSCULOSKELETAL PAIN [None]
  - TREMOR [None]
  - URINE OUTPUT DECREASED [None]
  - VERTIGO [None]
  - VISUAL FIELD DEFECT [None]
  - VISUAL IMPAIRMENT [None]
